FAERS Safety Report 16859041 (Version 1)
Quarter: 2019Q3

REPORT INFORMATION
  Report Type: Spontaneous
  Country: US (occurrence: US)
  Receive Date: 20190926
  Receipt Date: 20190926
  Transmission Date: 20191005
  Serious: No
  Sender: FDA-Public Use
  Company Number: US-B.I. PHARMACEUTICALS,INC./RIDGEFIELD-2019-US-103790

PATIENT
  Age: 72 Year
  Sex: Female

DRUGS (3)
  1. LISINOPRIL. [Concomitant]
     Active Substance: LISINOPRIL
     Indication: HYPERTENSION
     Route: 065
  2. CELEBREX [Concomitant]
     Active Substance: CELECOXIB
     Indication: INFLAMMATION
     Route: 065
  3. JARDIANCE [Suspect]
     Active Substance: EMPAGLIFLOZIN
     Indication: GLUCOSE TOLERANCE IMPAIRED
     Dosage: 10MG ONE TABLET DAILY
     Route: 065
     Dates: start: 2018

REACTIONS (5)
  - Pleuritic pain [Recovering/Resolving]
  - Off label use [Unknown]
  - Dehydration [Not Recovered/Not Resolved]
  - Weight increased [Not Recovered/Not Resolved]
  - Blood urea increased [Not Recovered/Not Resolved]

NARRATIVE: CASE EVENT DATE: 2018
